FAERS Safety Report 4318598-0 (Version None)
Quarter: 2004Q1

REPORT INFORMATION
  Report Type: 
  Country: None (occurrence: None)
  Receive Date: 20040316
  Receipt Date: 20040316
  Transmission Date: 20041129
  Serious: Yes (Hospitalization)
  Sender: FDA-Public Use
  Company Number: None

PATIENT
  Age: 71 Year
  Sex: Female
  Weight: 42.7 kg

DRUGS (1)
  1. TEQUIN [Suspect]
     Indication: PNEUMONIA ASPIRATION
     Dosage: 400 MG PO QD
     Route: 048
     Dates: start: 20030212, end: 20030213

REACTIONS (1)
  - BLOOD GLUCOSE DECREASED [None]
